FAERS Safety Report 10063672 (Version 2)
Quarter: 2014Q2

REPORT INFORMATION
  Report Type: Spontaneous
  Country: AU (occurrence: AU)
  Receive Date: 20140407
  Receipt Date: 20140507
  Transmission Date: 20141212
  Serious: Yes (Other)
  Sender: FDA-Public Use
  Company Number: PHHY2014AU041159

PATIENT
  Age: 67 Year
  Sex: Male
  Weight: 101.5 kg

DRUGS (20)
  1. TRILEPTAL [Suspect]
     Indication: TRIGEMINAL NEURALGIA
     Dosage: 300 MG, BID
     Route: 048
     Dates: start: 20140328, end: 20140330
  2. LYRICA [Concomitant]
     Dosage: 1 DF, TID
  3. BACLOFEN [Concomitant]
     Dosage: 900 MG, DAILY
  4. LIPITOR [Concomitant]
     Dosage: 80 MG DAILY (IN NIGHT)
  5. OROXINE [Concomitant]
     Dosage: 100 UG, DAILY
  6. ASPIRIN [Concomitant]
     Dosage: 100 MG, DAILY
  7. OXYNORM [Concomitant]
     Indication: PAIN
     Dosage: 1 DF, PRN (NO MORE THAN 3 IN A DAY)
  8. TEMGESIC [Concomitant]
     Dosage: 0.2 MG, PRN (1-2 TABLETS EVERY 6-8 HOURS OR AS NECESSARY)
     Route: 060
  9. ASTRIX [Concomitant]
     Dosage: 1 DF, DAILY
  10. ATROVENT FORTE [Concomitant]
     Dosage: 1 PUFF TDS TO EACH NOSTRILS (42UG/SPRAY)
     Route: 045
  11. AVANZA [Concomitant]
     Dosage: 0.5 MG NOCTE (IN NIGHT)
  12. COLOXYL WITH SENNA [Concomitant]
     Dosage: 2 DF, NOCTE
  13. HYDROXOCOBALAMIN [Concomitant]
     Dosage: B12 INJECTION AS PER DOCTOR
  14. KALMA [Concomitant]
     Dosage: 0.5 DF, PRN
  15. MOVICOL [Concomitant]
     Dosage: 1 DF, DAILY
  16. NITROLINGUAL-SPRAY N [Concomitant]
     Dosage: 1 PUFF PRN
  17. OSTELIN VITAMIN D [Concomitant]
     Dosage: 2 DF, DAILY
     Route: 048
  18. STELAX [Concomitant]
     Dosage: 3 DF, TID
  19. VENTOLIN                           /00942701/ [Concomitant]
     Indication: COUGH
     Dosage: 1-2 PUFFS WITH SPACER, 6 HOURLY
  20. VENTOLIN                           /00942701/ [Concomitant]
     Indication: WHEEZING

REACTIONS (7)
  - Hypersensitivity [Recovering/Resolving]
  - Dry skin [Recovering/Resolving]
  - Skin induration [Recovering/Resolving]
  - Rash generalised [Recovering/Resolving]
  - Rash erythematous [Recovering/Resolving]
  - Rash macular [Recovering/Resolving]
  - Iron deficiency [Unknown]
